FAERS Safety Report 20901186 (Version 9)
Quarter: 2023Q2

REPORT INFORMATION
  Report Type: Spontaneous
  Country: CA (occurrence: CA)
  Receive Date: 20220601
  Receipt Date: 20230613
  Transmission Date: 20230721
  Serious: Yes (Other)
  Sender: FDA-Public Use
  Company Number: CA-PFIZER INC-202200694173

PATIENT
  Age: 45 Year
  Sex: Male

DRUGS (3)
  1. GENOTROPIN [Suspect]
     Active Substance: SOMATROPIN
     Indication: Growth hormone deficiency
     Dosage: 0.3 MG, 7 DAYS A WEEK
     Route: 058
  2. GENOTROPIN [Suspect]
     Active Substance: SOMATROPIN
     Dosage: 300 UG, 6 DAYS A WEEK
     Route: 058
  3. GENOTROPIN [Suspect]
     Active Substance: SOMATROPIN
     Dosage: 300 UG, 7 DAYS A WEEK
     Route: 058
     Dates: start: 20220909

REACTIONS (20)
  - Diabetes mellitus [Unknown]
  - Drug ineffective [Unknown]
  - Skin striae [Unknown]
  - Weight increased [Unknown]
  - Fatigue [Unknown]
  - Glycosylated haemoglobin increased [Unknown]
  - Lacrimation increased [Unknown]
  - Eye swelling [Unknown]
  - Lagophthalmos [Unknown]
  - Insulin-like growth factor increased [Not Recovered/Not Resolved]
  - Weight decreased [Unknown]
  - Low density lipoprotein increased [Unknown]
  - Non-high-density lipoprotein cholesterol increased [Not Recovered/Not Resolved]
  - Blood cholesterol increased [Unknown]
  - Nausea [Not Recovered/Not Resolved]
  - Vomiting [Not Recovered/Not Resolved]
  - Diarrhoea [Not Recovered/Not Resolved]
  - Product contamination physical [Unknown]
  - Urine albumin/creatinine ratio increased [Not Recovered/Not Resolved]
  - Blood pressure diastolic increased [Unknown]

NARRATIVE: CASE EVENT DATE: 20210101
